FAERS Safety Report 9275761 (Version 1)
Quarter: 2012Q4

REPORT INFORMATION
  Report Type: Spontaneous
  Country: IT (occurrence: None)
  Receive Date: 20121109
  Receipt Date: 20121109
  Transmission Date: 20130627
  Serious: Yes (Other)
  Sender: FDA-Public Use
  Company Number: 2011S1000772

PATIENT
  Age: 62 Year
  Sex: Female

DRUGS (3)
  1. CUBICIN (DAPTOMYCIN) [Suspect]
     Indication: IMPLANT SITE INFECTION
     Route: 042
     Dates: start: 20111012, end: 20111024
  2. MESTINON [Concomitant]
  3. EUTIROX /00068001/ [Concomitant]

REACTIONS (1)
  - Myositis [None]
